FAERS Safety Report 24185260 (Version 1)
Quarter: 2024Q3

REPORT INFORMATION
  Report Type: Spontaneous
  Country: US (occurrence: US)
  Receive Date: 20240807
  Receipt Date: 20240807
  Transmission Date: 20241016
  Serious: No
  Sender: GLENMARK
  Company Number: US-GLENMARK PHARMACEUTICALS-2024GMK090952

PATIENT

DRUGS (2)
  1. RYALTRIS [Suspect]
     Active Substance: MOMETASONE FUROATE MONOHYDRATE\OLOPATADINE HYDROCHLORIDE
     Indication: Nasal polyps
     Dosage: 2 DOSAGE FORM, BID, NSTILL 2  SPRAYS IN EACH NOSTRIL TWICE  DAILY.
     Route: 045
  2. RYALTRIS [Suspect]
     Active Substance: MOMETASONE FUROATE MONOHYDRATE\OLOPATADINE HYDROCHLORIDE
     Indication: Nasal congestion

REACTIONS (4)
  - Rhinalgia [Recovered/Resolved]
  - Nasal crusting [Recovered/Resolved]
  - Nasal dryness [Recovered/Resolved]
  - Product use in unapproved indication [Unknown]
